FAERS Safety Report 4316891-9 (Version None)
Quarter: 2004Q1

REPORT INFORMATION
  Report Type: 
  Country: None (occurrence: None)
  Receive Date: 20040308
  Receipt Date: 20040204
  Transmission Date: 20041129
  Serious: Yes (Hospitalization)
  Sender: FDA-Public Use
  Company Number: PHEH2004US01550

PATIENT
  Age: 56 Year
  Sex: Male

DRUGS (2)
  1. GLEEVEC [Suspect]
     Indication: LEUKAEMIA
     Dosage: 400 MG, BID, ORAL
     Route: 048
     Dates: start: 20020601, end: 20031201
  2. GLEEVEC [Suspect]
     Indication: LEUKAEMIA
     Dosage: 100 MG, QID, ORAL
     Route: 048
     Dates: start: 20031201

REACTIONS (7)
  - DIARRHOEA [None]
  - GYNAECOMASTIA [None]
  - HYPERAESTHESIA [None]
  - HYPOAESTHESIA [None]
  - MUSCLE CRAMP [None]
  - NAUSEA [None]
  - VOMITING [None]
